FAERS Safety Report 16260816 (Version 12)
Quarter: 2019Q4

REPORT INFORMATION
  Report Type: Spontaneous
  Country: GB (occurrence: GB)
  Receive Date: 20190501
  Receipt Date: 20191210
  Transmission Date: 20200122
  Serious: Yes (Hospitalization, Other)
  Sender: FDA-Public Use
  Company Number: GB-MYLANLABS-2019M1029637

PATIENT
  Age: 40 Year
  Sex: Male

DRUGS (2)
  1. CLOZARIL [Suspect]
     Active Substance: CLOZAPINE
     Indication: SCHIZOPHRENIA
     Dosage: 400 MILLIGRAM, PM
     Route: 048
     Dates: start: 20090722
  2. PROMETHAZINE [Concomitant]
     Active Substance: PROMETHAZINE HYDROCHLORIDE
     Indication: MENTAL DISORDER
     Dosage: UNK

REACTIONS (10)
  - Testis cancer [Unknown]
  - Red cell distribution width increased [Not Recovered/Not Resolved]
  - Lymphocyte count decreased [Unknown]
  - White blood cell count decreased [Unknown]
  - Neutrophil count decreased [Unknown]
  - Hospitalisation [Unknown]
  - Platelet count increased [Unknown]
  - Anaemia [Not Recovered/Not Resolved]
  - Thrombocytopenia [Recovered/Resolved]
  - Off label use [Unknown]

NARRATIVE: CASE EVENT DATE: 2017
